FAERS Safety Report 7805275-4 (Version None)
Quarter: 2011Q4

REPORT INFORMATION
  Report Type: 
  Country: None (occurrence: None)
  Receive Date: 20111010
  Receipt Date: 20111006
  Transmission Date: 20120403
  Serious: No
  Sender: FDA-Public Use
  Company Number: US-TEVA-299679USA

PATIENT
  Sex: Male
  Weight: 70.37 kg

DRUGS (5)
  1. ASCORBIC ACID [Concomitant]
     Dosage: 1000 MILLIGRAM;
  2. ATENOLOL [Concomitant]
     Dosage: 12.5 MILLIGRAM;
     Route: 048
  3. VITAMIN D [Concomitant]
     Dosage: 8000 UNKNOWN;
  4. COPAXONE [Suspect]
     Indication: MULTIPLE SCLEROSIS
     Dosage: 20 MILLIGRAM;
     Route: 058
     Dates: start: 20110817
  5. ASPIRIN [Concomitant]
     Dosage: 46.4286 MILLIGRAM;
     Route: 048

REACTIONS (3)
  - INJECTION SITE REACTION [None]
  - INJECTION SITE HAEMATOMA [None]
  - INJECTION SITE ERYTHEMA [None]
